FAERS Safety Report 13094915 (Version 1)
Quarter: 2017Q1

REPORT INFORMATION
  Report Type: Spontaneous
  Country: US (occurrence: US)
  Receive Date: 20170106
  Receipt Date: 20170106
  Transmission Date: 20170428
  Serious: Yes (Other)
  Sender: FDA-Public Use
  Company Number: US-GLAXOSMITHKLINE-US2017GSK000973

PATIENT
  Age: 65 Year
  Weight: 72.56 kg

DRUGS (2)
  1. ZANTAC [Suspect]
     Active Substance: RANITIDINE HYDROCHLORIDE
     Indication: PRODUCT USED FOR UNKNOWN INDICATION
  2. CARAFATE [Suspect]
     Active Substance: SUCRALFATE
     Indication: PRODUCT USED FOR UNKNOWN INDICATION

REACTIONS (14)
  - Drug dose omission [Unknown]
  - Incorrect dose administered [Unknown]
  - Weight decreased [Unknown]
  - Endoscopy [Unknown]
  - Oesophageal dilation procedure [Unknown]
  - Underdose [Unknown]
  - Choking [Unknown]
  - Dysphagia [Unknown]
  - Foreign body [Unknown]
  - Hiatus hernia [Unknown]
  - Colectomy [Unknown]
  - Pseudopolyp [Unknown]
  - Cough [Unknown]
  - Drug ineffective [Unknown]

NARRATIVE: CASE EVENT DATE: 2016
